FAERS Safety Report 11270054 (Version 3)
Quarter: 2016Q1

REPORT INFORMATION
  Report Type: Spontaneous
  Country: US (occurrence: US)
  Receive Date: 20150714
  Receipt Date: 20160219
  Transmission Date: 20160525
  Serious: Yes (Hospitalization, Disabling, Other)
  Sender: FDA-Public Use
  Company Number: US-PFIZER INC-2015229812

PATIENT
  Age: 31 Year
  Sex: Female
  Weight: 61.68 kg

DRUGS (76)
  1. FENTANYL. [Concomitant]
     Active Substance: FENTANYL
     Indication: PAIN
     Dosage: UNK
  2. VALTREX [Concomitant]
     Active Substance: VALACYCLOVIR HYDROCHLORIDE
     Indication: HERPES SIMPLEX
     Dosage: UNK
     Dates: start: 2010
  3. VALTREX [Concomitant]
     Active Substance: VALACYCLOVIR HYDROCHLORIDE
     Dosage: 500 MG, 1X/DAY
     Route: 048
     Dates: start: 20151001
  4. MESTINON [Concomitant]
     Active Substance: PYRIDOSTIGMINE BROMIDE
     Indication: POSTURAL ORTHOSTATIC TACHYCARDIA SYNDROME
     Dosage: 60 MG 2 TABLETS IN MORNINGS, 1 TABLET AT LUNCH AND 2 TABLETS IN EVENING
     Route: 048
     Dates: start: 2011
  5. DEPO-PROVERA [Concomitant]
     Active Substance: MEDROXYPROGESTERONE ACETATE
     Indication: CONTRACEPTION
     Dosage: UNK
  6. SALINE [Concomitant]
     Indication: BLOOD PRESSURE ABNORMAL
     Dosage: UNK
  7. SALINE [Concomitant]
     Dosage: 2000 ML, ON EVERY MONDAY, WEDNESDAY AND FRIDAY
     Route: 042
     Dates: start: 20150813
  8. ESCITALOPRAM [Concomitant]
     Active Substance: ESCITALOPRAM OXALATE
     Dosage: 20 MG, DAILY
     Route: 048
     Dates: start: 20151202
  9. SODIUM CHLORIDE. [Concomitant]
     Active Substance: SODIUM CHLORIDE
     Indication: POSTURAL ORTHOSTATIC TACHYCARDIA SYNDROME
     Dosage: 1500 ML, THREE TIMES A WEEK
     Route: 042
     Dates: start: 20140509
  10. LEXAPRO [Concomitant]
     Active Substance: ESCITALOPRAM OXALATE
     Indication: ABDOMINAL DISCOMFORT
  11. LYRICA [Suspect]
     Active Substance: PREGABALIN
     Indication: FIBROMYALGIA
     Dosage: UNK
     Route: 048
  12. DOXYCYCLINE. [Concomitant]
     Active Substance: DOXYCYCLINE
     Dosage: 100 MG, 1X/DAY BED TIME
     Route: 048
     Dates: start: 20150310
  13. PROMETHAZINE [Concomitant]
     Active Substance: PROMETHAZINE\PROMETHAZINE HYDROCHLORIDE
     Indication: MOTION SICKNESS
  14. SUMAVEL DOSEPRO [Concomitant]
     Active Substance: SUMATRIPTAN SUCCINATE
     Indication: MIGRAINE
     Dosage: 6 MG/0.5 MILLILITRE AS NEEDED 1 SHOT IN EVERY 24 HOURS)
     Route: 058
     Dates: start: 20151015
  15. RITALIN [Concomitant]
     Active Substance: METHYLPHENIDATE HYDROCHLORIDE
     Indication: ATTENTION DEFICIT/HYPERACTIVITY DISORDER
     Dosage: 20 MG, 3X/DAY
     Route: 048
  16. VENLAFAXINE [Concomitant]
     Active Substance: VENLAFAXINE HYDROCHLORIDE
     Dosage: 1.5 TABLETS, 2X/DAY
     Route: 048
     Dates: start: 20150624
  17. GUAIFENESIN. [Concomitant]
     Active Substance: GUAIFENESIN
     Indication: SINUS CONGESTION
     Dosage: UNK UNK, AS NEEDED
  18. GUAIFENESIN. [Concomitant]
     Active Substance: GUAIFENESIN
     Indication: RESPIRATORY TRACT CONGESTION
  19. LYRICA [Suspect]
     Active Substance: PREGABALIN
     Indication: PAIN
     Dosage: 150 MG, 2X/DAY
     Route: 048
     Dates: start: 20150204, end: 20150615
  20. CLARITIN [Concomitant]
     Active Substance: LORATADINE
     Dosage: UNK
  21. CLARITIN [Concomitant]
     Active Substance: LORATADINE
     Dosage: 10 MG, 2X/DAY
     Route: 048
     Dates: start: 20151230
  22. FLONASE [Concomitant]
     Active Substance: FLUTICASONE PROPIONATE
     Dosage: 100 UG, DAILY (50 MCG, 2 SPRAY)
     Route: 045
     Dates: start: 20130228
  23. AMITRIPTYLINE [Concomitant]
     Active Substance: AMITRIPTYLINE
     Indication: SLEEP DISORDER
     Dosage: UNK
  24. EFFEXOR [Concomitant]
     Active Substance: VENLAFAXINE HYDROCHLORIDE
     Dosage: UNK
  25. SALINE [Concomitant]
     Indication: DEHYDRATION
     Dosage: UNK, 1X/DAY
     Route: 042
     Dates: start: 20140911
  26. PEPTO-BISMOL [Concomitant]
     Active Substance: BISMUTH SUBSALICYLATE\CALCIUM CARBONATE
     Indication: VOMITING
     Dosage: UNK, AS NEEDED
  27. LORATADINE. [Concomitant]
     Active Substance: LORATADINE
     Indication: HYPERSENSITIVITY
  28. LYRICA [Suspect]
     Active Substance: PREGABALIN
     Dosage: 200 MG, 2X/DAY
     Route: 048
     Dates: start: 20150909
  29. LYRICA [Suspect]
     Active Substance: PREGABALIN
     Dosage: 20 MG, 2X/DAY
     Route: 048
  30. BACLOFEN. [Concomitant]
     Active Substance: BACLOFEN
     Dosage: 10 MG, 1X/DAY BED TIME
     Route: 048
     Dates: start: 20150629
  31. FLONASE [Concomitant]
     Active Substance: FLUTICASONE PROPIONATE
     Dosage: 100 UG, DAILY (50 MCG, 2 SPRAY)
     Route: 045
     Dates: start: 20151230
  32. NEXIUM [Concomitant]
     Active Substance: ESOMEPRAZOLE MAGNESIUM
     Indication: GASTROOESOPHAGEAL REFLUX DISEASE
     Dosage: 40 MG, 1X/DAY MORNING
     Route: 048
     Dates: start: 20150310
  33. DEPO-PROVERA [Concomitant]
     Active Substance: MEDROXYPROGESTERONE ACETATE
     Indication: ENDOMETRIOSIS
     Dosage: 150 MG/ML, EVERY 3 MONTHS
     Route: 030
     Dates: start: 20150929
  34. EFFEXOR XR [Concomitant]
     Active Substance: VENLAFAXINE HYDROCHLORIDE
     Indication: ANTIDEPRESSANT THERAPY
     Dosage: 150 MG, 2X/DAY
  35. EMLA [Concomitant]
     Active Substance: LIDOCAINE\PRILOCAINE
     Dosage: 2.5 % QUARTER-SIZE DOT OF CREAM 3X A WEEK
     Route: 061
  36. MUCINEX [Concomitant]
     Active Substance: GUAIFENESIN
     Dosage: UNK UNK, AS NEEDED
     Dates: start: 20111121
  37. LEXAPRO [Concomitant]
     Active Substance: ESCITALOPRAM OXALATE
     Indication: DEPRESSION
     Dosage: 20 MG, 1X/DAY (BEDTIME)
     Dates: start: 20150604
  38. CLONAZEPAM. [Concomitant]
     Active Substance: CLONAZEPAM
     Indication: ANXIETY
     Dosage: UNK
     Dates: start: 2012
  39. CLONAZEPAM. [Concomitant]
     Active Substance: CLONAZEPAM
     Dosage: 1 MG, 3X/DAY
     Route: 048
     Dates: start: 20151026
  40. LINZESS [Concomitant]
     Active Substance: LINACLOTIDE
     Indication: IRRITABLE BOWEL SYNDROME
     Dosage: UNK
  41. LINZESS [Concomitant]
     Active Substance: LINACLOTIDE
     Dosage: 145 UG, 1X/DAY
     Route: 048
     Dates: start: 20151228
  42. PROMETHAZINE [Concomitant]
     Active Substance: PROMETHAZINE\PROMETHAZINE HYDROCHLORIDE
     Indication: NAUSEA
     Dosage: UNK
  43. AMITRIPTYLINE [Concomitant]
     Active Substance: AMITRIPTYLINE
     Indication: ANTIDEPRESSANT THERAPY
     Dosage: 25 MG, 1X/DAY, (AT BED TIME)
     Route: 048
     Dates: start: 20151130
  44. MESTINON [Concomitant]
     Active Substance: PYRIDOSTIGMINE BROMIDE
     Dosage: 60 MG, 3X/DAY
     Route: 048
     Dates: start: 20151112
  45. BOTOX [Concomitant]
     Active Substance: ONABOTULINUMTOXINA
     Indication: MIGRAINE
     Dosage: UNK
  46. LIDOCAINE. [Concomitant]
     Active Substance: LIDOCAINE
     Dosage: UNK UNK, 2X/DAY (1 PATCH)
     Route: 061
     Dates: start: 20131231
  47. TUMS [Concomitant]
     Active Substance: CALCIUM CARBONATE
     Indication: NAUSEA
     Dosage: UNK UNK, AS NEEDED
     Dates: start: 20111121
  48. LEXAPRO [Concomitant]
     Active Substance: ESCITALOPRAM OXALATE
     Indication: SLEEP DISORDER
     Dosage: 20 MG, 2X/DAY
     Dates: start: 201510
  49. GINGER. [Concomitant]
     Active Substance: GINGER
     Indication: NAUSEA
     Dosage: UNK UNK, AS NEEDED
  50. PROMETHAZINE [Concomitant]
     Active Substance: PROMETHAZINE\PROMETHAZINE HYDROCHLORIDE
     Indication: VOMITING
     Dosage: 25 MG, AS NEEDED
     Route: 054
     Dates: start: 20141114
  51. PROCHLORPERAZINE. [Concomitant]
     Active Substance: PROCHLORPERAZINE
     Indication: NAUSEA
     Dosage: UNK
     Dates: start: 2015
  52. HEPARIN [Concomitant]
     Active Substance: HEPARIN SODIUM
     Indication: ANTICOAGULANT THERAPY
     Dosage: ^5 ML INJECTION AFTER INFUSIONS 3X WEEKLY^
     Route: 042
  53. ZOFRAN [Concomitant]
     Active Substance: ONDANSETRON HYDROCHLORIDE
     Dosage: 8 MG, 2X/DAY
     Route: 048
     Dates: start: 20150617
  54. SODIUM CHLORIDE. [Concomitant]
     Active Substance: SODIUM CHLORIDE
     Indication: BLOOD PRESSURE ABNORMAL
  55. LORATADINE. [Concomitant]
     Active Substance: LORATADINE
     Indication: SINUSITIS
     Dosage: 10 MG, 2X/DAY
  56. XANAX [Concomitant]
     Active Substance: ALPRAZOLAM
     Indication: ANXIETY
     Dosage: 1 MG, 2X/DAY AS NEEDED
     Route: 048
     Dates: start: 20151230
  57. FLONASE [Concomitant]
     Active Substance: FLUTICASONE PROPIONATE
     Indication: HYPERSENSITIVITY
     Dosage: UNK
     Dates: start: 2010
  58. NEXIUM [Concomitant]
     Active Substance: ESOMEPRAZOLE MAGNESIUM
     Indication: GASTROOESOPHAGEAL REFLUX DISEASE
  59. PROCHLORPERAZINE. [Concomitant]
     Active Substance: PROCHLORPERAZINE
     Indication: VOMITING
     Dosage: 5 MG, AS NEEDED UP TO 3 TIMES A DAY
     Route: 048
     Dates: start: 20160104
  60. BOTOX [Concomitant]
     Active Substance: ONABOTULINUMTOXINA
     Dosage: UNK UNK, EVERY 3 MONTHS
     Dates: start: 20120711
  61. RITALIN [Concomitant]
     Active Substance: METHYLPHENIDATE HYDROCHLORIDE
     Indication: HYPOTENSION
  62. PRAZOSIN [Concomitant]
     Active Substance: PRAZOSIN
     Indication: POST-TRAUMATIC STRESS DISORDER
     Dosage: 4 MG, 1X/DAY BEDTIME
     Route: 048
     Dates: start: 20151230
  63. FLUDROCORTISONE [Concomitant]
     Active Substance: FLUDROCORTISONE
     Dosage: 0.1 MG, 2X/DAY
     Route: 047
     Dates: start: 20141219
  64. SODIUM CHLORIDE. [Concomitant]
     Active Substance: SODIUM CHLORIDE
     Indication: DEHYDRATION
  65. EMLA [Concomitant]
     Active Substance: LIDOCAINE\PRILOCAINE
     Indication: NAEVUS FLAMMEUS
     Dosage: UNK UNK, 1X/DAY (APPLY TO SKIN 30 MINUTES PRIOR TO BEING ACCESSED)
     Route: 061
     Dates: start: 20131231
  66. LIDODERM [Concomitant]
     Active Substance: LIDOCAINE
     Indication: PAIN
     Dosage: 5% UP TO 2 PATCHES DAILY AS NEEDED
  67. CLARITIN [Concomitant]
     Active Substance: LORATADINE
     Dosage: 10 MG, 2X/DAY
     Route: 048
     Dates: start: 20150615
  68. FENTANYL. [Concomitant]
     Active Substance: FENTANYL
     Dosage: 1 PATCH EVERY 72 HOURS
     Route: 061
     Dates: start: 20151230
  69. FLORINEF ACETATE [Concomitant]
     Active Substance: FLUDROCORTISONE ACETATE
     Indication: POSTURAL ORTHOSTATIC TACHYCARDIA SYNDROME
     Dosage: 0.1 MG, 2X/DAY
     Dates: start: 2011
  70. FLORINEF ACETATE [Concomitant]
     Active Substance: FLUDROCORTISONE ACETATE
     Dosage: 0.1 MG, 1X/DAY
  71. BACLOFEN. [Concomitant]
     Active Substance: BACLOFEN
     Indication: MUSCLE SPASMS
     Dosage: UNK
     Dates: start: 2013
  72. DOXYCYCLINE. [Concomitant]
     Active Substance: DOXYCYCLINE
     Indication: ACNE
     Dosage: UNK
     Dates: start: 2010
  73. HEPARIN [Concomitant]
     Active Substance: HEPARIN SODIUM
     Dosage: 500 IU, AS NEEDED (100 UNITS/ML, 5 ML)
     Route: 042
     Dates: start: 20150721
  74. PEPTO-BISMOL [Concomitant]
     Active Substance: BISMUTH SUBSALICYLATE\CALCIUM CARBONATE
     Indication: NAUSEA
     Dosage: UNK, 4X/DAY
     Dates: start: 20140725
  75. PEPTO-BISMOL [Concomitant]
     Active Substance: BISMUTH SUBSALICYLATE\CALCIUM CARBONATE
     Indication: INFLAMMATORY BOWEL DISEASE
  76. GINGER. [Concomitant]
     Active Substance: GINGER
     Indication: SUPPLEMENTATION THERAPY

REACTIONS (43)
  - Visual impairment [Unknown]
  - Contusion [Unknown]
  - Ocular discomfort [Unknown]
  - Migraine [Unknown]
  - Emotional disorder [Unknown]
  - Constipation [Unknown]
  - Frustration tolerance decreased [Unknown]
  - Chromatopsia [Unknown]
  - Nausea [Unknown]
  - Condition aggravated [Unknown]
  - Decreased appetite [Unknown]
  - Anger [Unknown]
  - Small fibre neuropathy [Not Recovered/Not Resolved]
  - Irritable bowel syndrome [Unknown]
  - Muscle spasms [Unknown]
  - Anal incontinence [Unknown]
  - Communication disorder [Unknown]
  - Autonomic nervous system imbalance [Not Recovered/Not Resolved]
  - Mental disability [Unknown]
  - Mood altered [Unknown]
  - Speech disorder [Unknown]
  - Malaise [Unknown]
  - Diarrhoea [Unknown]
  - Abdominal pain upper [Unknown]
  - Head injury [Unknown]
  - Seizure [Unknown]
  - Photophobia [Unknown]
  - Judgement impaired [Unknown]
  - Memory impairment [Unknown]
  - Face injury [Unknown]
  - Impaired driving ability [Unknown]
  - Activities of daily living impaired [Unknown]
  - Vision blurred [Unknown]
  - Pain in extremity [Unknown]
  - Thinking abnormal [Unknown]
  - Sleep disorder [Unknown]
  - Loss of consciousness [Unknown]
  - Dizziness [Unknown]
  - Balance disorder [Unknown]
  - Anxiety [Unknown]
  - Fall [Unknown]
  - Motor dysfunction [Unknown]
  - Incontinence [Unknown]
